FAERS Safety Report 20519815 (Version 1)
Quarter: 2022Q1

REPORT INFORMATION
  Report Type: Spontaneous
  Country: US (occurrence: None)
  Receive Date: 20220225
  Receipt Date: 20220225
  Transmission Date: 20220424
  Serious: Yes (Disabling)
  Sender: FDA-Public Use
  Company Number: None

PATIENT
  Age: 46 Year
  Sex: Female
  Weight: 94.5 kg

DRUGS (27)
  1. ASENAPINE [Suspect]
     Active Substance: ASENAPINE
     Indication: Hallucination
     Dosage: OTHER QUANTITY : 2 TABLET(S);?FREQUENCY : AT BEDTIME;?
     Route: 060
     Dates: start: 20220216, end: 20220220
  2. ASENAPINE [Suspect]
     Active Substance: ASENAPINE
     Indication: Insomnia
  3. LANTUS [Concomitant]
     Active Substance: INSULIN GLARGINE
  4. LEVEMIR [Concomitant]
     Active Substance: INSULIN DETEMIR
  5. TRULICITY [Concomitant]
     Active Substance: DULAGLUTIDE
  6. AZOTHIAPRINE [Concomitant]
  7. BETHANACHOL [Concomitant]
  8. CARBIDOPA\LEVODOPA [Concomitant]
     Active Substance: CARBIDOPA\LEVODOPA
  9. PRIMIDONE [Concomitant]
     Active Substance: PRIMIDONE
  10. CITALOPRAM [Concomitant]
     Active Substance: CITALOPRAM HYDROBROMIDE
  11. KLONOPIN [Concomitant]
     Active Substance: CLONAZEPAM
  12. BENZTROPINE [Concomitant]
     Active Substance: BENZTROPINE
  13. DEXILANT [Concomitant]
     Active Substance: DEXLANSOPRAZOLE
  14. ROPINAROLE [Concomitant]
  15. METOPROLOL [Concomitant]
     Active Substance: METOPROLOL
  16. ELMIRON [Concomitant]
     Active Substance: PENTOSAN POLYSULFATE SODIUM
  17. LEFLUNOMIDE [Concomitant]
     Active Substance: LEFLUNOMIDE
  18. METAXALONE [Concomitant]
     Active Substance: METAXALONE
  19. GABAPENTIN [Concomitant]
     Active Substance: GABAPENTIN
  20. TAMSULOSIN [Concomitant]
     Active Substance: TAMSULOSIN
  21. XARELTO [Concomitant]
     Active Substance: RIVAROXABAN
  22. AMITRIPTYLINE [Concomitant]
     Active Substance: AMITRIPTYLINE
  23. HYDROXYZINE [Concomitant]
     Active Substance: HYDROXYZINE HYDROCHLORIDE
  24. MIRTAZAPINE [Concomitant]
     Active Substance: MIRTAZAPINE
  25. ATORVASTATIN [Concomitant]
     Active Substance: ATORVASTATIN
  26. HYDROCODONE/APAP [Concomitant]
  27. SAPHRIS [Concomitant]
     Active Substance: ASENAPINE MALEATE

REACTIONS (5)
  - Product substitution issue [None]
  - Product physical issue [None]
  - Blister [None]
  - Burning sensation [None]
  - Haemorrhage [None]

NARRATIVE: CASE EVENT DATE: 20220217
